FAERS Safety Report 18325748 (Version 2)
Quarter: 2020Q4

REPORT INFORMATION
  Report Type: Spontaneous
  Country: AU (occurrence: AU)
  Receive Date: 20200929
  Receipt Date: 20201009
  Transmission Date: 20210113
  Serious: Yes (Hospitalization, Other)
  Sender: FDA-Public Use
  Company Number: AU-BAXTER-2020BAX019349

PATIENT
  Age: 76 Year
  Sex: Male
  Weight: 75 kg

DRUGS (4)
  1. FENTANYL. [Suspect]
     Active Substance: FENTANYL
     Indication: SEDATIVE THERAPY
     Route: 042
  2. EPINEPHRINE. [Suspect]
     Active Substance: EPINEPHRINE
     Indication: NERVE BLOCK
     Dosage: 1:200,000
     Route: 065
  3. LIGNOCAINE-CLARIS [Suspect]
     Active Substance: LIDOCAINE HYDROCHLORIDE
     Indication: NERVE BLOCK
     Route: 065
  4. MIDAZOLAM-CLARIS [Suspect]
     Active Substance: MIDAZOLAM HYDROCHLORIDE
     Indication: SEDATIVE THERAPY
     Route: 042

REACTIONS (8)
  - Respiratory failure [Recovering/Resolving]
  - Sedation complication [Recovering/Resolving]
  - Ventricular extrasystoles [Recovering/Resolving]
  - Respiratory acidosis [Recovering/Resolving]
  - Haemodynamic instability [Recovering/Resolving]
  - Nerve block [Recovering/Resolving]
  - Atrial fibrillation [Recovering/Resolving]
  - Hypertension [Recovering/Resolving]
